FAERS Safety Report 10182679 (Version 1)
Quarter: 2014Q2

REPORT INFORMATION
  Report Type: Spontaneous
  Country: US (occurrence: None)
  Receive Date: 20140519
  Receipt Date: 20140519
  Transmission Date: 20141212
  Serious: Yes (Life-Threatening, Hospitalization)
  Sender: FDA-Public Use
  Company Number: None

PATIENT
  Age: 28 Year
  Sex: Male
  Weight: 67.13 kg

DRUGS (1)
  1. ASTHMANEFRIN [Suspect]
     Indication: ASTHMA
     Route: 055
     Dates: start: 20140214, end: 20140515

REACTIONS (5)
  - Drug dependence [None]
  - Feeling abnormal [None]
  - Cough [None]
  - Pain [None]
  - Activities of daily living impaired [None]
